FAERS Safety Report 11253971 (Version 1)
Quarter: 2015Q3

REPORT INFORMATION
  Report Type: Spontaneous
  Country: US (occurrence: US)
  Receive Date: 20150709
  Receipt Date: 20150709
  Transmission Date: 20151125
  Serious: No
  Sender: FDA-Public Use
  Company Number: US-BIOGENIDEC-2015BI094982

PATIENT
  Age: 35 Year
  Sex: Female

DRUGS (4)
  1. CLONAZEPAM. [Concomitant]
     Active Substance: CLONAZEPAM
     Route: 048
  2. AVONEX [Suspect]
     Active Substance: INTERFERON BETA-1A
     Indication: MULTIPLE SCLEROSIS
     Route: 030
     Dates: start: 20080502
  3. BUSCOPAN [Concomitant]
     Active Substance: BUTYLSCOPOLAMINE BROMIDE
  4. PARACETAMOL [Concomitant]
     Active Substance: ACETAMINOPHEN

REACTIONS (22)
  - Crying [Unknown]
  - Pelvic pain [Recovered/Resolved]
  - Apathy [Recovered/Resolved]
  - Rash macular [Unknown]
  - Tachycardia [Unknown]
  - Weight decreased [Unknown]
  - Pyrexia [Recovered/Resolved]
  - Alopecia [Unknown]
  - Feeling cold [Recovered/Resolved]
  - Diarrhoea [Recovered/Resolved]
  - Paraesthesia [Unknown]
  - Hypersensitivity [Unknown]
  - Insomnia [Unknown]
  - Dysstasia [Unknown]
  - Malaise [Unknown]
  - Tremor [Unknown]
  - Gait disturbance [Unknown]
  - Pain [Recovered/Resolved]
  - Headache [Recovered/Resolved]
  - Chest pain [Unknown]
  - Furuncle [Unknown]
  - Application site pain [Unknown]

NARRATIVE: CASE EVENT DATE: 20080502
